FAERS Safety Report 8236007-6 (Version None)
Quarter: 2012Q1

REPORT INFORMATION
  Report Type: 
  Country: None (occurrence: None)
  Receive Date: 20120326
  Receipt Date: 20120315
  Transmission Date: 20120608
  Serious: Yes (Hospitalization)
  Sender: FDA-Public Use
  Company Number: RU-ASTRAZENECA-2012SE18274

PATIENT
  Age: 645 Month
  Sex: Male
  Weight: 90 kg

DRUGS (5)
  1. ATORIS (ATORVASTATIN) [Concomitant]
     Indication: CORONARY ARTERY DISEASE
     Route: 048
     Dates: start: 20110826
  2. CARDIOMAGNYL (ACETYLSALICYLIC ACID + MAGNESIUM HYDROXIDE) [Concomitant]
     Indication: CORONARY ARTERY DISEASE
     Route: 048
     Dates: start: 20110810
  3. ZYLLT (CLOPIDOGREL) [Concomitant]
     Indication: CORONARY ARTERY DISEASE
     Route: 048
     Dates: start: 20110810
  4. METOPROLOL SUCCINATE [Suspect]
     Indication: CORONARY ARTERY DISEASE
     Route: 048
     Dates: start: 20110811
  5. PRESTARIUM A (PERINDOPRIL) [Concomitant]
     Indication: CORONARY ARTERY DISEASE
     Route: 048
     Dates: start: 20110816

REACTIONS (1)
  - BRONCHITIS CHRONIC [None]
